FAERS Safety Report 6009971-3 (Version None)
Quarter: 2008Q4

REPORT INFORMATION
  Report Type: 
  Country: None (occurrence: None)
  Receive Date: 20081218
  Receipt Date: 20081211
  Transmission Date: 20090506
  Serious: Yes (Hospitalization)
  Sender: FDA-Public Use
  Company Number: FR-JNJFOC-20081203260

PATIENT
  Age: 52 Year
  Sex: Male

DRUGS (12)
  1. TAVANIC [Suspect]
     Indication: INJURY CORNEAL
     Route: 048
  2. PIPERACILLINE PANPHARMA [Suspect]
     Indication: INJURY CORNEAL
     Route: 042
  3. FUNGIZONE [Suspect]
     Indication: INJURY CORNEAL
     Route: 042
  4. VANCOMYCIN [Suspect]
     Indication: INJURY CORNEAL
     Route: 042
  5. TAZOCILLINE [Suspect]
     Indication: INJURY CORNEAL
     Route: 042
  6. TICARCILLIN [Concomitant]
     Indication: INJURY CORNEAL
     Dosage: RETROBULBAR
     Route: 047
  7. GENTALLINE [Concomitant]
     Indication: INJURY CORNEAL
     Dosage: RETROBULBAR
     Route: 047
  8. VANCOMYCIN HCL [Concomitant]
     Indication: INJURY CORNEAL
     Dosage: RETROBULBAR
     Route: 047
  9. TOBREX [Concomitant]
     Indication: INJURY CORNEAL
     Dosage: RETROBULBAR
     Route: 047
  10. FUNGIZONE [Concomitant]
     Dosage: RETROBULBAR
     Route: 047
  11. RIFADIN [Concomitant]
     Indication: INJURY CORNEAL
     Dosage: RETROBULBAR
     Route: 047
  12. CHIBROXINE [Concomitant]
     Indication: INJURY CORNEAL
     Dosage: RETROBULBAR
     Route: 047

REACTIONS (5)
  - CHILLS [None]
  - FEBRILE NEUTROPENIA [None]
  - HYPERHIDROSIS [None]
  - PYREXIA [None]
  - TOXIC SKIN ERUPTION [None]
